FAERS Safety Report 12076267 (Version 1)
Quarter: 2016Q1

REPORT INFORMATION
  Report Type: Spontaneous
  Country: US (occurrence: US)
  Receive Date: 20160215
  Receipt Date: 20160215
  Transmission Date: 20160526
  Serious: No
  Sender: FDA-Public Use
  Company Number: US-ASTRAZENECA-2016SE11864

PATIENT
  Sex: Female
  Weight: 45.8 kg

DRUGS (1)
  1. TUDORZA PRESSAIR [Suspect]
     Active Substance: ACLIDINIUM BROMIDE
     Indication: CHRONIC OBSTRUCTIVE PULMONARY DISEASE
     Dosage: 400 MCG 60 METERED DOSE INHALER; TWO TIMES A DAY
     Route: 055
     Dates: start: 20150203

REACTIONS (3)
  - Product quality issue [Unknown]
  - Dysphonia [Unknown]
  - Laryngitis [Unknown]
